FAERS Safety Report 18768030 (Version 1)
Quarter: 2021Q1

REPORT INFORMATION
  Report Type: Spontaneous
  Country: US (occurrence: US)
  Receive Date: 20210113
  Receipt Date: 20210113
  Transmission Date: 20210419
  Serious: Yes (Death)
  Sender: FDA-Public Use
  Company Number: DL2021-01

PATIENT
  Age: 26 Year
  Sex: Female

DRUGS (4)
  1. MIFEPRISTONE TABLETS, 200 MG (DANCO LABS) [Suspect]
     Active Substance: MIFEPRISTONE
     Indication: ABORTION INDUCED
     Route: 048
     Dates: start: 20200528
  2. CLINDAMYCIN. [Concomitant]
     Active Substance: CLINDAMYCIN
  3. HYPERRHO S/D [Concomitant]
     Active Substance: HUMAN RHO(D) IMMUNE GLOBULIN
  4. MISOPROSTOL TABLETS, 200 MCG [Suspect]
     Active Substance: MISOPROSTOL
     Route: 002
     Dates: start: 20200529

REACTIONS (7)
  - Bacterial vaginosis [None]
  - Toxicity to various agents [None]
  - Vaginal haemorrhage [None]
  - Accidental death [None]
  - Contraindication to medical treatment [None]
  - Treatment noncompliance [None]
  - Maternal exposure timing unspecified [None]

NARRATIVE: CASE EVENT DATE: 20201022
